FAERS Safety Report 8934065 (Version 3)
Quarter: 2012Q4

REPORT INFORMATION
  Report Type: 
  Country: JP (occurrence: JP)
  Receive Date: 20121129
  Receipt Date: 20121219
  Transmission Date: 20130627
  Serious: Yes (Hospitalization)
  Sender: FDA-Public Use
  Company Number: JP-PFIZER INC-2012298330

PATIENT
  Age: 70 Year
  Sex: Female

DRUGS (4)
  1. HALCION [Suspect]
     Indication: SLEEP DISORDER
     Dosage: 0.5 mg, 1x/day
     Route: 048
  2. EURODIN [Concomitant]
     Dosage: 1 mg, 1x/day
     Route: 048
  3. PAXIL [Concomitant]
     Dosage: 30 mg, 1x/day
     Route: 048
  4. DEPAS [Concomitant]
     Dosage: 1 mg, 1x/day
     Route: 048

REACTIONS (2)
  - Neoplasm malignant [Unknown]
  - Disease progression [Unknown]
